FAERS Safety Report 8958933 (Version 2)
Quarter: 2012Q4

REPORT INFORMATION
  Report Type: 
  Country: US (occurrence: US)
  Receive Date: 20121211
  Receipt Date: 20121218
  Transmission Date: 20130627
  Serious: Yes (Death, Hospitalization)
  Sender: FDA-Public Use
  Company Number: US-VERTEX PHARMACEUTICAL INC.-2012-021817

PATIENT
  Age: 60 Year
  Sex: Male

DRUGS (12)
  1. VX-950 (TELAPREVIR) [Suspect]
     Indication: HEPATITIS C
     Dosage: 750 mg, tid
     Route: 048
     Dates: start: 20120913
  2. PEGASYS [Suspect]
     Indication: HEPATITIS C
     Dosage: 180 ?g, qw
     Route: 058
     Dates: start: 20120913
  3. RIBASPHERE [Suspect]
     Indication: HEPATITIS C
     Dosage: 200 mg, tid
     Route: 048
     Dates: start: 20120913
  4. PANTOPRAZOLE [Concomitant]
     Dosage: 40 mg, qd
  5. AMLODIPINE BESYLATE [Concomitant]
     Dosage: 5 mg, qd
  6. MYFORTIC [Concomitant]
     Dosage: 180 mg, bid
     Route: 048
  7. NOVOLOG [Concomitant]
     Dosage: 100 DF, UNK
     Route: 058
  8. METOPROLOL TARTRATE [Concomitant]
     Dosage: 25 mg, bid
     Route: 048
  9. TACROLIMUS [Concomitant]
     Dosage: 0.5 mg, bid
     Route: 048
  10. LEXAPRO [Concomitant]
     Dosage: 10 mg, qd
     Route: 048
  11. SULPHAMETHOXAZOLE [Concomitant]
     Dosage: 1 DF, qd
     Route: 048
  12. NEXAVAR [Concomitant]
     Dosage: 400 mg, bid
     Route: 048

REACTIONS (3)
  - Death [Fatal]
  - Fatigue [Unknown]
  - Jaundice [Unknown]
